FAERS Safety Report 8073362-4 (Version None)
Quarter: 2012Q1

REPORT INFORMATION
  Report Type: 
  Country: None (occurrence: None)
  Receive Date: 20120126
  Receipt Date: 20120117
  Transmission Date: 20120608
  Serious: Yes (Death)
  Sender: FDA-Public Use
  Company Number: US-ACTELION-A-US2011-58534

PATIENT

DRUGS (3)
  1. VIAGRA [Concomitant]
  2. TRACLEER [Suspect]
     Indication: PULMONARY ARTERIAL HYPERTENSION
     Dosage: UNK
     Route: 048
     Dates: start: 20020829, end: 20111215
  3. CALCIUM CHANNEL BLOCKERS [Concomitant]

REACTIONS (4)
  - MALIGNANT PLEURAL EFFUSION [None]
  - PULMONARY HYPERTENSION [None]
  - METASTASES TO PLEURA [None]
  - RESPIRATORY FAILURE [None]
